FAERS Safety Report 15728860 (Version 1)
Quarter: 2018Q4

REPORT INFORMATION
  Report Type: Spontaneous
  Country: JP (occurrence: JP)
  Receive Date: 20181217
  Receipt Date: 20181217
  Transmission Date: 20190205
  Serious: Yes (Death, Hospitalization)
  Sender: FDA-Public Use
  Company Number: PHJP2018JP020773

PATIENT

DRUGS (1)
  1. AMANTADINE. [Suspect]
     Active Substance: AMANTADINE HYDROCHLORIDE
     Indication: PARKINSONISM
     Dosage: 300 MG, UNK
     Route: 048

REACTIONS (9)
  - Pneumonia aspiration [Unknown]
  - Drug level increased [Unknown]
  - Toxicity to various agents [Unknown]
  - Pyrexia [Unknown]
  - Altered state of consciousness [Unknown]
  - Blood creatine phosphokinase increased [Unknown]
  - Acute respiratory distress syndrome [Fatal]
  - Renal impairment [Unknown]
  - Myoclonus [Unknown]
